FAERS Safety Report 8830889 (Version 1)
Quarter: 2012Q4

REPORT INFORMATION
  Report Type: 
  Country: US (occurrence: US)
  Receive Date: 20121009
  Receipt Date: 20121009
  Transmission Date: 20130627
  Serious: No
  Sender: FDA-Public Use
  Company Number: US-BAYER-2012-094599

PATIENT
  Age: 52 Year
  Sex: Male

DRUGS (2)
  1. LEVITRA [Suspect]
     Dosage: 10 mg, UNK
     Route: 048
     Dates: start: 2009
  2. LEVITRA [Suspect]
     Dosage: 20 mg, UNK
     Route: 048
     Dates: start: 20120907, end: 20120907

REACTIONS (1)
  - Adverse event [None]
